FAERS Safety Report 6551299-7 (Version None)
Quarter: 2010Q1

REPORT INFORMATION
  Report Type: 
  Country: None (occurrence: None)
  Receive Date: 20100126
  Receipt Date: 20100115
  Transmission Date: 20100710
  Serious: Yes (Other)
  Sender: FDA-Public Use
  Company Number: US-RB-001006-10

PATIENT
  Age: 72 Year
  Sex: Male

DRUGS (2)
  1. MUCINEX FULL FORCE NASAL SPRAY [Suspect]
     Route: 045
  2. MUCINEX UNKNOWN [Suspect]
     Dosage: BEEN TAKING THIS FOR YEARS
     Route: 048

REACTIONS (2)
  - BLOOD PRESSURE INCREASED [None]
  - INCORRECT DRUG ADMINISTRATION DURATION [None]
